FAERS Safety Report 8052744-0 (Version None)
Quarter: 2012Q1

REPORT INFORMATION
  Report Type: 
  Country: None (occurrence: None)
  Receive Date: 20120117
  Receipt Date: 20120117
  Transmission Date: 20120608
  Serious: Yes (Hospitalization)
  Sender: FDA-Public Use
  Company Number: None

PATIENT
  Age: 66 Year
  Sex: Male
  Weight: 105.5 kg

DRUGS (2)
  1. CARBIDOPA AND LEVODOPA [Suspect]
     Dosage: 75/300 MG TID PO
     Route: 048
     Dates: start: 20110726, end: 20110804
  2. QUETIAPINE [Suspect]
     Dosage: 12.5 MG BID PO
     Route: 048
     Dates: start: 20110726, end: 20110804

REACTIONS (2)
  - AGGRESSION [None]
  - HALLUCINATION [None]
